FAERS Safety Report 5285529-9 (Version None)
Quarter: 2007Q1

REPORT INFORMATION
  Report Type: 
  Country: None (occurrence: None)
  Receive Date: 20070328
  Receipt Date: 20070312
  Transmission Date: 20070707
  Serious: Yes (Other)
  Sender: FDA-Public Use
  Company Number: TRP_0919_2007

PATIENT
  Age: 40 Year
  Sex: Female

DRUGS (2)
  1. RIBAPAK/RIBAVIRIN/THREE RIVERS PHARM [Suspect]
     Indication: HEPATITIS C
     Dosage: 1200 MG QDAY PO
     Route: 048
     Dates: start: 20070207
  2. PEGASYS [Suspect]
     Indication: HEPATITIS C
     Dosage: 180 MCG QWK SC
     Route: 058
     Dates: start: 20070207

REACTIONS (8)
  - ASTHENIA [None]
  - BREAST MILK DISCOLOURATION [None]
  - DECREASED APPETITE [None]
  - DIPLOPIA [None]
  - FATIGUE [None]
  - GALACTORRHOEA [None]
  - INSOMNIA [None]
  - NAUSEA [None]
